FAERS Safety Report 16285361 (Version 2)
Quarter: 2019Q3

REPORT INFORMATION
  Report Type: Report from Study
  Country: ZA (occurrence: ZA)
  Receive Date: 20190508
  Receipt Date: 20190711
  Transmission Date: 20191004
  Serious: Yes (Life-Threatening, Hospitalization, Disabling)
  Sender: FDA-Public Use
  Company Number: ZA-SA-2019SA092928

PATIENT
  Age: 48 Year
  Sex: Female

DRUGS (6)
  1. ASPAVOR [Concomitant]
     Active Substance: ATORVASTATIN
     Dosage: 20 MG,BED TIME HS
     Dates: start: 20180101
  2. GLUCOPHAGE XR [Concomitant]
     Active Substance: METFORMIN HYDROCHLORIDE
     Dosage: 1000 MG FOR BEFORE SUPPER BB BEFORE BREAKFAST, BID
     Dates: start: 20180101
  3. ONGLYZA [Concomitant]
     Active Substance: SAXAGLIPTIN HYDROCHLORIDE
     Dosage: BEFORE BREAKFAST-5 MG, QD
     Dates: start: 20180101
  4. ZARTAN (LOSARTAN POTASSIUM) [Concomitant]
     Active Substance: LOSARTAN POTASSIUM
     Dosage: BEFORE BREAKFAST-50 MG, QD
     Dates: start: 20180101
  5. TOUJEO [Suspect]
     Active Substance: INSULIN GLARGINE
     Dosage: 30 U, BED TIME,HS
     Dates: start: 20190306
  6. INSULIN GLULISINE [Suspect]
     Active Substance: INSULIN GLULISINE
     Dosage: BS-8 UNITS | BL-08 UNITS | BB-16 UNITS (BS BEFORE SUPPER, BL BEFORE LUNCH, BB BEFORE BREAKFAST)
     Dates: start: 20180101

REACTIONS (10)
  - Blood glucose abnormal [Recovered/Resolved]
  - Hypoglycaemia [Recovered/Resolved]
  - Hypertension [Recovered/Resolved]
  - Intentional product misuse [Unknown]
  - Drug hypersensitivity [Recovered/Resolved]
  - Dizziness [Recovered/Resolved]
  - Nausea [Recovered/Resolved]
  - Vomiting [Unknown]
  - Glycosylated haemoglobin increased [Unknown]
  - Blood glucose increased [Recovered/Resolved]

NARRATIVE: CASE EVENT DATE: 20190327
